FAERS Safety Report 21640036 (Version 2)
Quarter: 2022Q4

REPORT INFORMATION
  Report Type: Spontaneous
  Country: ES (occurrence: None)
  Receive Date: 20221124
  Receipt Date: 20221207
  Transmission Date: 20230113
  Serious: Yes (Hospitalization)
  Sender: FDA-Public Use
  Company Number: ES-ROCHE-3208658

PATIENT
  Age: 63 Year
  Sex: Male

DRUGS (4)
  1. ATEZOLIZUMAB [Suspect]
     Active Substance: ATEZOLIZUMAB
     Indication: Hepatocellular carcinoma
     Dosage: HE RECEIVED 3 DOSES; 4-5?DAYS AFTER THE 3RD DOSE,
     Route: 065
     Dates: start: 20220902
  2. BEVACIZUMAB [Suspect]
     Active Substance: BEVACIZUMAB
     Indication: Hepatocellular carcinoma
     Route: 065
  3. INSULIN NOS [Concomitant]
     Active Substance: INSULIN NOS
  4. LENVATINIB [Concomitant]
     Active Substance: LENVATINIB

REACTIONS (5)
  - Haemorrhage [Recovered/Resolved]
  - Gastrointestinal haemorrhage [Unknown]
  - Ascites [Unknown]
  - Diabetes mellitus [Unknown]
  - Hepatic encephalopathy [Unknown]

NARRATIVE: CASE EVENT DATE: 20221118
